FAERS Safety Report 5471121-X (Version None)
Quarter: 2007Q3

REPORT INFORMATION
  Report Type: 
  Country: None (occurrence: None)
  Receive Date: 20070928
  Receipt Date: 20061128
  Transmission Date: 20080115
  Serious: Yes (Disabling)
  Sender: FDA-Public Use
  Company Number: A0627309A

PATIENT
  Sex: Female

DRUGS (2)
  1. EPIVIR-HBV [Suspect]
     Dosage: 100MG PER DAY
     Route: 048
  2. NO CONCURRENT MEDICATION [Concomitant]

REACTIONS (2)
  - CHILLS [None]
  - PYREXIA [None]
